FAERS Safety Report 9711652 (Version 2)
Quarter: 2013Q4

REPORT INFORMATION
  Report Type: Spontaneous
  Country: US (occurrence: US)
  Receive Date: 20131126
  Receipt Date: 20131126
  Transmission Date: 20140711
  Serious: No
  Sender: FDA-Public Use
  Company Number: US-BRISTOL-MYERS SQUIBB COMPANY-19083542

PATIENT
  Age: 54 Year
  Sex: Female
  Weight: 83.9 kg

DRUGS (2)
  1. BYDUREON [Suspect]
     Indication: TYPE 2 DIABETES MELLITUS
     Dosage: DURATION-A COUPLE OF MONTHS
  2. GLUCOPHAGE [Concomitant]

REACTIONS (1)
  - Photosensitivity reaction [Not Recovered/Not Resolved]
